FAERS Safety Report 10308694 (Version 1)
Quarter: 2014Q3

REPORT INFORMATION
  Report Type: Spontaneous
  Country: IT (occurrence: IT)
  Receive Date: 20140716
  Receipt Date: 20140716
  Transmission Date: 20150326
  Serious: Yes (Death, Other)
  Sender: FDA-Public Use
  Company Number: IT-MALLINCKRODT-T201402740

PATIENT
  Age: 64 Year
  Sex: Male

DRUGS (3)
  1. ARGININE [Concomitant]
     Active Substance: ARGININE
     Dosage: 25 G, SINGLE
     Route: 042
  2. OCTREOSCAN [Suspect]
     Active Substance: INDIUM IN-111 CHLORIDE\INDIUM IN-111 PENTETREOTIDE\PENTETREOTIDE
     Indication: MENINGIOMA
     Dosage: TWO TREATMENTS; CUMULATIVE DOSE OF 14.8 GBQ
     Route: 065
  3. LYSINE [Concomitant]
     Active Substance: LYSINE
     Dosage: 25 G, SINGLE
     Route: 042

REACTIONS (3)
  - Off label use [Unknown]
  - Prescribed overdose [Unknown]
  - Disease progression [Fatal]
